FAERS Safety Report 16367662 (Version 1)
Quarter: 2019Q2

REPORT INFORMATION
  Report Type: Spontaneous
  Country: KR (occurrence: KR)
  Receive Date: 20190529
  Receipt Date: 20190529
  Transmission Date: 20190711
  Serious: Yes (Other)
  Sender: FDA-Public Use
  Company Number: US-SLATE RUN PHARMACEUTICALS-SLTR-AE-19-24

PATIENT
  Age: 10 Year
  Sex: Male

DRUGS (8)
  1. IMMUNOGLOBULIN NOS [Concomitant]
     Active Substance: IMMUNE GLOBULIN NOS
  2. CIDOFOVIR. [Concomitant]
     Active Substance: CIDOFOVIR
     Dosage: THE PATIENT WAS GIVEN CIDOFOVIR 1 MG/KG/DAY, 3 TIMES/WEEK, THEN CHANGED TO 2 MG/KG EVERY 2 WEEKS.
  3. ACYCLOVIR. [Concomitant]
     Active Substance: ACYCLOVIR
     Indication: MENINGITIS
  4. VANCOMYCIN [Concomitant]
     Active Substance: VANCOMYCIN
     Indication: MENINGITIS
  5. MEROPENEM. [Concomitant]
     Active Substance: MEROPENEM
     Indication: MENINGITIS
  6. 70436-089-55 GANCICLOVIR FOR INJECTION DRY VIAL USP 500 MG [Suspect]
     Active Substance: GANCICLOVIR SODIUM
     Indication: CYTOMEGALOVIRUS CHORIORETINITIS
  7. ANTIBIOTIC THERAPY [Concomitant]
     Indication: CYTOMEGALOVIRUS INFECTION
     Dosage: THE PATIENT WAS TREATED WITH ANTIBIOTIC THERAPY WITH RENAL IMPAIRMENT DOSE FOR CMV INFECTION.
  8. GRANULOCYTE COLONY-STIMULATING FACTOR [Concomitant]
     Active Substance: GRANULOCYTE COLONY-STIMULATING FACTOR NOS

REACTIONS (5)
  - Generalised tonic-clonic seizure [Fatal]
  - Meningitis [Fatal]
  - Anaemia [Fatal]
  - Thrombocytopenia [Fatal]
  - Leukopenia [Fatal]
